FAERS Safety Report 14835706 (Version 1)
Quarter: 2018Q2

REPORT INFORMATION
  Report Type: Spontaneous
  Country: JP (occurrence: JP)
  Receive Date: 20180502
  Receipt Date: 20180502
  Transmission Date: 20180711
  Serious: Yes (Other)
  Sender: FDA-Public Use
  Company Number: JP-ROCHE-2117233

PATIENT
  Age: 71 Year
  Sex: Male
  Weight: 70 kg

DRUGS (4)
  1. HERCEPTIN [Suspect]
     Active Substance: TRASTUZUMAB
     Indication: OESOPHAGEAL ADENOCARCINOMA
     Route: 041
     Dates: start: 20180322, end: 20180322
  2. CISPLATIN. [Concomitant]
     Active Substance: CISPLATIN
     Indication: OESOPHAGEAL ADENOCARCINOMA
     Route: 041
  3. LOXOPROFEN NA [Concomitant]
     Active Substance: LOXOPROFEN SODIUM
     Route: 048
  4. REBAMIPIDE [Concomitant]
     Active Substance: REBAMIPIDE
     Route: 048

REACTIONS (2)
  - Shock [Recovered/Resolved]
  - Back pain [Unknown]

NARRATIVE: CASE EVENT DATE: 20180322
